FAERS Safety Report 5403160-9 (Version None)
Quarter: 2007Q3

REPORT INFORMATION
  Report Type: 
  Country: None (occurrence: None)
  Receive Date: 20070801
  Receipt Date: 20070724
  Transmission Date: 20080115
  Serious: Yes (Hospitalization, Other)
  Sender: FDA-Public Use
  Company Number: US-PFIZER INC-2007060591

PATIENT
  Sex: Female
  Weight: 61.2 kg

DRUGS (15)
  1. SOLU-MEDROL [Suspect]
     Dosage: DAILY DOSE:1000MG-FREQ:FREQUENCY: ONCE
     Route: 042
     Dates: start: 20070214, end: 20070214
  2. SOLU-MEDROL [Suspect]
     Dosage: DAILY DOSE:500MG-FREQ:FREQUENCY: 2 IN 1 DAYS
     Route: 042
     Dates: start: 20070215, end: 20070217
  3. REBIF [Suspect]
     Indication: MULTIPLE SCLEROSIS
     Route: 058
  4. REBIF [Suspect]
     Dosage: DAILY DOSE:44MCG-FREQ:FREQUENCY: 3 IN 1 WEEKS
     Route: 058
  5. REBIF [Suspect]
     Dosage: DAILY DOSE:22MCG-FREQ:FREQUENCY: 3 IN 1 WEEKS
     Route: 058
  6. AMANTADINE HCL [Concomitant]
  7. LYRICA [Concomitant]
  8. ARICEPT [Concomitant]
  9. ERGOTAMINE [Concomitant]
  10. FOSAMAX [Concomitant]
  11. VITAMIN CAP [Concomitant]
  12. CALCIUM WITH VITAMIN D [Concomitant]
  13. ASCORBIC ACID [Concomitant]
  14. GLUCOSAMINE [Concomitant]
  15. MAGNESIUM SULFATE [Concomitant]

REACTIONS (2)
  - BLOOD PRESSURE INCREASED [None]
  - MULTIPLE SCLEROSIS RELAPSE [None]
